FAERS Safety Report 9817082 (Version 4)
Quarter: 2014Q1

REPORT INFORMATION
  Report Type: Spontaneous
  Country: IT (occurrence: IT)
  Receive Date: 20140114
  Receipt Date: 20140321
  Transmission Date: 20141002
  Serious: Yes (Death, Hospitalization)
  Sender: FDA-Public Use
  Company Number: PHHY2014IT002816

PATIENT
  Sex: Male

DRUGS (6)
  1. CERTICAN [Suspect]
     Indication: IMMUNOSUPPRESSION
     Dosage: 1.5 MG, DAILY
     Route: 048
     Dates: start: 20121126, end: 20130707
  2. NEXAVAR [Suspect]
     Indication: HEPATIC CANCER
     Dosage: 800 MG, UNK
     Route: 048
  3. NEXAVAR [Suspect]
     Dosage: 400 MG, DAILY
     Route: 048
     Dates: start: 20130213, end: 20130707
  4. URSODEOXYCHOLIC ACID [Concomitant]
     Dosage: 300 MG, UNK
     Route: 048
  5. ROCALTROL [Concomitant]
     Dosage: 1POSOLOGIC UNIT
     Route: 048
  6. MEGACE [Concomitant]
     Dosage: 1POSOLOGIC UNIT
     Dates: start: 20130508, end: 20130707

REACTIONS (2)
  - Diarrhoea [Fatal]
  - Coma [Fatal]
